FAERS Safety Report 11627955 (Version 3)
Quarter: 2016Q1

REPORT INFORMATION
  Report Type: Spontaneous
  Country: US (occurrence: US)
  Receive Date: 20151014
  Receipt Date: 20160218
  Transmission Date: 20160525
  Serious: No
  Sender: FDA-Public Use
  Company Number: US-009507513-1510USA002291

PATIENT
  Age: 32 Year
  Sex: Female
  Weight: 70.3 kg

DRUGS (4)
  1. NUVARING [Suspect]
     Active Substance: ETHINYL ESTRADIOL\ETONOGESTREL
     Indication: CONTRACEPTION
     Dosage: 1 RING/3 WEEKS IN 1 WEEK OUT
     Route: 067
     Dates: start: 201412
  2. NUVARING [Suspect]
     Active Substance: ETHINYL ESTRADIOL\ETONOGESTREL
     Indication: OVARIAN CYST
  3. NUVARING [Suspect]
     Active Substance: ETHINYL ESTRADIOL\ETONOGESTREL
     Indication: ENDOMETRITIS
  4. VITAMINS (UNSPECIFIED) [Concomitant]
     Active Substance: VITAMINS

REACTIONS (6)
  - Therapeutic response unexpected [Unknown]
  - Metrorrhagia [Unknown]
  - Dysmenorrhoea [Unknown]
  - Device expulsion [Unknown]
  - Menstruation normal [Unknown]
  - Off label use [Unknown]

NARRATIVE: CASE EVENT DATE: 2014
